FAERS Safety Report 14313646 (Version 2)
Quarter: 2018Q1

REPORT INFORMATION
  Report Type: Spontaneous
  Country: SG (occurrence: SG)
  Receive Date: 20171221
  Receipt Date: 20180110
  Transmission Date: 20180509
  Serious: Yes (Other)
  Sender: FDA-Public Use
  Company Number: SG-PFIZER INC-2017538397

PATIENT
  Age: 51 Year
  Sex: Female

DRUGS (9)
  1. DOXORUBICIN HYDROCHLORIDE. [Concomitant]
     Active Substance: DOXORUBICIN HYDROCHLORIDE
     Dosage: UNK, CYCLIC (LAST CYCLE)
     Dates: end: 19980811
  2. DIPHENHYDRAMINE. [Concomitant]
     Active Substance: DIPHENHYDRAMINE
     Dosage: 25 MG, UNK (EVERY 30 MINS BEFORE PACLITAXEL)
     Route: 042
     Dates: start: 1998
  3. CIMETIDINE [Concomitant]
     Active Substance: CIMETIDINE
     Dosage: 300 MG, UNK (EVERY 30 MINS BEFORE PACLITAXEL)
     Route: 042
     Dates: start: 1998
  4. DOXORUBICIN HYDROCHLORIDE. [Concomitant]
     Active Substance: DOXORUBICIN HYDROCHLORIDE
     Indication: BREAST CANCER
     Dosage: 60 MG/M2, CYCLIC (72-HOUR INFUSION VIA CENTRAL LINE)
     Dates: start: 1998
  5. PACLITAXEL. [Suspect]
     Active Substance: PACLITAXEL
     Indication: BREAST CANCER
     Dosage: 175 MG/M2, CYCLIC
     Dates: start: 19980904
  6. CYCLOPHOSPHAMIDE. [Concomitant]
     Active Substance: CYCLOPHOSPHAMIDE
     Dosage: UNK, CYCLIC (LAST CYCLE)
     Dates: end: 19980811
  7. CYCLOPHOSPHAMIDE. [Concomitant]
     Active Substance: CYCLOPHOSPHAMIDE
     Indication: BREAST CANCER
     Dosage: 600 MG/M2, CYCLIC
     Dates: start: 1998
  8. DEXAMETHASONE SODIUM PHOSPHATE. [Concomitant]
     Active Substance: DEXAMETHASONE SODIUM PHOSPHATE
     Indication: PREMEDICATION
     Dosage: 20 MG, UNK (6 AND 12 HOURS BEFORE CHEMOTHERAPY)
     Route: 048
     Dates: start: 1998
  9. ONDANSETRON [Concomitant]
     Active Substance: ONDANSETRON
     Dosage: 8 MG, UNK (EVERY 30 MINS BEFORE PACLITAXEL)
     Route: 042
     Dates: start: 1998, end: 1998

REACTIONS (4)
  - Pseudomembranous colitis [Recovered/Resolved]
  - Myalgia [Recovered/Resolved]
  - Vomiting [Recovered/Resolved]
  - Paraesthesia [Recovered/Resolved]

NARRATIVE: CASE EVENT DATE: 1998
